FAERS Safety Report 21194903 (Version 3)
Quarter: 2022Q4

REPORT INFORMATION
  Report Type: Spontaneous
  Country: IT (occurrence: IT)
  Receive Date: 20220810
  Receipt Date: 20221018
  Transmission Date: 20230113
  Serious: Yes (Other)
  Sender: FDA-Public Use
  Company Number: IT-NOVARTISPH-NVSC2022IT178594

PATIENT
  Age: 3 Year
  Sex: Male

DRUGS (3)
  1. ONASEMNOGENE ABEPARVOVEC [Suspect]
     Active Substance: ONASEMNOGENE ABEPARVOVEC
     Indication: Spinal muscular atrophy
     Dosage: 1.1X10E14VG/KG, ONCE/SINGLE
     Route: 042
  2. AMPICILLIN [Concomitant]
     Active Substance: AMPICILLIN
     Indication: Leukocytosis
     Dosage: UNK
     Route: 065
  3. AMPICILLIN [Concomitant]
     Active Substance: AMPICILLIN
     Indication: C-reactive protein increased

REACTIONS (1)
  - Haemophagocytic lymphohistiocytosis [Recovered/Resolved]
